FAERS Safety Report 8822979 (Version 1)
Quarter: 2012Q4

REPORT INFORMATION
  Report Type: Report from Study
  Country: GB (occurrence: GB)
  Receive Date: 20121003
  Receipt Date: 20121003
  Transmission Date: 20130627
  Serious: Yes (Hospitalization)
  Sender: FDA-Public Use
  Company Number: GB-ROCHE-1135018

PATIENT

DRUGS (2)
  1. ROACTEMRA [Suspect]
     Indication: PRODUCT USED FOR UNKNOWN INDICATION
     Dosage: date of last dose prior to SAE: 28/Jun/2012
     Route: 065
     Dates: start: 20100915
  2. HYDROXYCHLOROQUINE [Concomitant]

REACTIONS (1)
  - Psoriasis [Unknown]
